FAERS Safety Report 8225453-2 (Version None)
Quarter: 2012Q1

REPORT INFORMATION
  Report Type: 
  Country: None (occurrence: None)
  Receive Date: 20120321
  Receipt Date: 20120314
  Transmission Date: 20120608
  Serious: Yes (Death, Other)
  Sender: FDA-Public Use
  Company Number: US-ELI_LILLY_AND_COMPANY-US201203004222

PATIENT
  Age: 45 Year
  Sex: Male

DRUGS (2)
  1. CARBOPLATIN [Concomitant]
     Dosage: UNK
     Dates: start: 20111101
  2. ALIMTA [Suspect]
     Indication: MESOTHELIOMA
     Dosage: 1000 MG/M2, UNKNOWN
     Dates: start: 20111101

REACTIONS (3)
  - RENAL FAILURE [None]
  - DEATH [None]
  - INFECTION [None]
